FAERS Safety Report 16149845 (Version 1)
Quarter: 2019Q2

REPORT INFORMATION
  Report Type: Spontaneous
  Country: FR (occurrence: FR)
  Receive Date: 20190403
  Receipt Date: 20190403
  Transmission Date: 20190711
  Serious: Yes (Other)
  Sender: FDA-Public Use
  Company Number: FR-ACCORD-117475

PATIENT
  Age: 46 Year
  Sex: Female

DRUGS (2)
  1. INFLIXIMAB [Suspect]
     Active Substance: INFLIXIMAB
     Indication: NEUROSARCOIDOSIS
     Dosage: TWO INFUSIONS TWO WEEKS APART, FURTHER FREQUENCY NOT STATED
     Route: 042
  2. METHOTREXATE. [Suspect]
     Active Substance: METHOTREXATE
     Indication: NEUROSARCOIDOSIS
     Dosage: MEDIAN DOSE 10 MG/WEEK (RANGE 7.5-20 MG/WEEK)
     Route: 065

REACTIONS (2)
  - Subcutaneous abscess [Unknown]
  - Off label use [Unknown]
